FAERS Safety Report 21552232 (Version 5)
Quarter: 2023Q2

REPORT INFORMATION
  Report Type: Report from Study
  Country: US (occurrence: US)
  Receive Date: 20221104
  Receipt Date: 20230616
  Transmission Date: 20230722
  Serious: Yes (Hospitalization)
  Sender: FDA-Public Use
  Company Number: US-AMGEN-USACT2022186634

PATIENT
  Age: 63 Year
  Sex: Male
  Weight: 74.5 kg

DRUGS (15)
  1. SOTORASIB [Suspect]
     Active Substance: SOTORASIB
     Indication: Colorectal cancer stage IV
     Dosage: UNK
     Route: 065
     Dates: start: 20220921
  2. SOTORASIB [Suspect]
     Active Substance: SOTORASIB
     Indication: K-ras gene mutation
  3. PALBOCICLIB [Suspect]
     Active Substance: PALBOCICLIB
     Indication: Colorectal cancer stage IV
     Dosage: UNK
     Route: 048
     Dates: start: 20220921, end: 20221011
  4. PALBOCICLIB [Suspect]
     Active Substance: PALBOCICLIB
     Indication: K-ras gene mutation
  5. TRAMADOL [Concomitant]
     Active Substance: TRAMADOL
     Dosage: 50 MILLIGRAM
     Route: 048
     Dates: start: 20221005
  6. AMLODIPINE [Concomitant]
     Active Substance: AMLODIPINE BESYLATE
     Dosage: 10 MILLIGRAM
     Route: 048
     Dates: start: 20211007
  7. MAALOX ANTACID [Concomitant]
     Active Substance: ALUMINUM HYDROXIDE\DIMETHICONE\MAGNESIUM HYDROXIDE
     Dosage: 10 MILLIGRAM
     Route: 048
     Dates: start: 20221005
  8. ATORVASTATIN [Concomitant]
     Active Substance: ATORVASTATIN
     Dosage: 80 MILLIGRAM
     Route: 048
     Dates: start: 20211007
  9. STEGLATRO [Concomitant]
     Active Substance: ERTUGLIFLOZIN PIDOLATE
     Dosage: 5 MILLIGRAM
     Route: 048
     Dates: start: 20211007
  10. ENALAPRIL [Concomitant]
     Active Substance: ENALAPRIL
     Dosage: 20 MILLIGRAM
     Route: 048
     Dates: start: 20211007
  11. METFORMIN [Concomitant]
     Active Substance: METFORMIN HYDROCHLORIDE
     Dosage: 500 MILLIGRAM
     Route: 048
     Dates: start: 20220916
  12. FAMOTIDINE [Concomitant]
     Active Substance: FAMOTIDINE
     Dosage: 10 MILLIGRAM
     Route: 048
     Dates: start: 20220916, end: 20221025
  13. ASPIRIN [Concomitant]
     Active Substance: ASPIRIN
     Dosage: 81 MILLIGRAM
     Route: 048
     Dates: start: 20211007
  14. SENNA [Concomitant]
     Active Substance: SENNA LEAF\SENNOSIDES\SENNOSIDES A AND B
     Dosage: 17.2  MILLIGRAM
     Route: 048
     Dates: start: 20220921
  15. TYLENOL [Concomitant]
     Active Substance: ACETAMINOPHEN
     Dosage: 650 MILLIGRAM
     Route: 048
     Dates: start: 20220929

REACTIONS (1)
  - Rhabdomyolysis [Recovered/Resolved]

NARRATIVE: CASE EVENT DATE: 20221026
